FAERS Safety Report 9097990 (Version 2)
Quarter: 2013Q1

REPORT INFORMATION
  Report Type: Spontaneous
  Country: US (occurrence: US)
  Receive Date: 20130212
  Receipt Date: 20130308
  Transmission Date: 20140127
  Serious: No
  Sender: FDA-Public Use
  Company Number: US-PFIZER INC-2013040986

PATIENT
  Age: 50 Year
  Sex: Female
  Weight: 83.9 kg

DRUGS (2)
  1. EFFEXOR XR [Suspect]
     Indication: DEPRESSION
     Dosage: 225 MG (150MG AND 75MG TOGETHER), 1X/DAY
  2. AVELOX [Concomitant]
     Indication: THYROIDITIS
     Dosage: 400 MG, 1X/DAY

REACTIONS (2)
  - Bronchitis [Recovered/Resolved]
  - Sinusitis [Recovered/Resolved]
